FAERS Safety Report 8200451-3 (Version None)
Quarter: 2012Q1

REPORT INFORMATION
  Report Type: 
  Country: None (occurrence: None)
  Receive Date: 20120312
  Receipt Date: 20120229
  Transmission Date: 20120608
  Serious: Yes (Hospitalization, Other)
  Sender: FDA-Public Use
  Company Number: FR-GENZYME-POMP-1002094

PATIENT
  Sex: Male
  Weight: 13.5 kg

DRUGS (3)
  1. MYOZYME [Suspect]
     Indication: GLYCOGEN STORAGE DISEASE TYPE II
     Dosage: 20 MG/KG, Q2W
     Route: 042
     Dates: start: 20090123
  2. ZANTAC [Concomitant]
     Indication: GASTROOESOPHAGEAL REFLUX DISEASE
     Dosage: 75 MG, QD
     Route: 065
  3. PULMICORT [Concomitant]
     Indication: ASTHMA
     Dosage: 0.5 MG, BID
     Route: 055

REACTIONS (2)
  - PAPULE [None]
  - STAPHYLOCOCCAL INFECTION [None]
